FAERS Safety Report 6939443-0 (Version None)
Quarter: 2010Q3

REPORT INFORMATION
  Report Type: 
  Country: None (occurrence: None)
  Receive Date: 20100824
  Receipt Date: 20100818
  Transmission Date: 20110219
  Serious: Yes (Hospitalization)
  Sender: FDA-Public Use
  Company Number: JP-MERCK-1008USA01052

PATIENT
  Age: 65 Year
  Sex: Female
  Weight: 56 kg

DRUGS (11)
  1. JANUVIA [Suspect]
     Indication: DIABETES MELLITUS
     Route: 048
     Dates: start: 20100624, end: 20100701
  2. JANUVIA [Suspect]
     Route: 048
     Dates: start: 20100316, end: 20100623
  3. VEGETAMIN B [Suspect]
     Indication: INSOMNIA
     Dosage: DAILY DOSAGE UNKNOWN
     Route: 048
     Dates: start: 20100604, end: 20100630
  4. ABILIFY [Concomitant]
     Indication: BIPOLAR DISORDER
     Route: 048
     Dates: start: 20091113
  5. THYRADIN-S [Concomitant]
     Indication: HYPOTHYROIDISM
     Route: 048
  6. LASIX [Concomitant]
     Indication: OEDEMA
     Route: 048
  7. RYTHMODAN [Concomitant]
     Indication: ARRHYTHMIA
     Route: 048
  8. METHYCOBAL [Concomitant]
     Indication: NEUROPATHY PERIPHERAL
     Route: 048
  9. LOXONIN [Concomitant]
     Indication: BACK PAIN
     Route: 048
  10. SILECE [Concomitant]
     Route: 048
     Dates: start: 20100208
  11. EURODIN [Concomitant]
     Indication: INSOMNIA
     Route: 048
     Dates: start: 20100330

REACTIONS (2)
  - HEPATIC FUNCTION ABNORMAL [None]
  - WRONG TECHNIQUE IN DRUG USAGE PROCESS [None]
